FAERS Safety Report 16246097 (Version 2)
Quarter: 2019Q3

REPORT INFORMATION
  Report Type: Report from Study
  Country: JP (occurrence: JP)
  Receive Date: 20190426
  Receipt Date: 20190715
  Transmission Date: 20191004
  Serious: Yes (Other)
  Sender: FDA-Public Use
  Company Number: JP-BAUSCH-BL-2019-012372

PATIENT
  Age: 64 Year
  Sex: Female
  Weight: 48 kg

DRUGS (12)
  1. SULPIRIDE [Concomitant]
     Active Substance: SULPIRIDE
     Route: 048
     Dates: start: 20170510, end: 20170512
  2. CHOREAZINE [Suspect]
     Active Substance: TETRABENAZINE
     Route: 048
     Dates: start: 20170410, end: 20170416
  3. TIAPRIDE [Concomitant]
     Active Substance: TIAPRIDE
     Route: 048
     Dates: start: 20170707, end: 20170912
  4. TRAZODONE HYDROCHLORIDE. [Concomitant]
     Active Substance: TRAZODONE HYDROCHLORIDE
     Indication: PRODUCT USED FOR UNKNOWN INDICATION
     Route: 048
     Dates: start: 20170228
  5. YOKUKANSAN [Concomitant]
     Active Substance: HERBALS
     Route: 048
  6. TIAPRIDE [Concomitant]
     Active Substance: TIAPRIDE
     Route: 048
     Dates: start: 20170913
  7. CHOREAZINE [Suspect]
     Active Substance: TETRABENAZINE
     Indication: HUNTINGTON^S DISEASE
     Route: 048
     Dates: start: 20170403, end: 20170409
  8. CHOREAZINE [Suspect]
     Active Substance: TETRABENAZINE
     Route: 048
     Dates: start: 20170417
  9. TIAPRIDE [Concomitant]
     Active Substance: TIAPRIDE
     Indication: PRODUCT USED FOR UNKNOWN INDICATION
     Route: 048
     Dates: start: 20170526, end: 20170706
  10. SULPIRIDE [Concomitant]
     Active Substance: SULPIRIDE
     Indication: PRODUCT USED FOR UNKNOWN INDICATION
     Route: 048
     Dates: start: 20170304, end: 20170402
  11. YOKUKANSAN [Concomitant]
     Active Substance: HERBALS
     Indication: PRODUCT USED FOR UNKNOWN INDICATION
     Route: 048
     Dates: start: 20170707, end: 20180111
  12. YOKUKANSAN [Concomitant]
     Active Substance: HERBALS
     Route: 048
     Dates: start: 20180112

REACTIONS (3)
  - Hypertension [Recovering/Resolving]
  - Ureteric stenosis [Recovered/Resolved]
  - Hydronephrosis [Recovered/Resolved]

NARRATIVE: CASE EVENT DATE: 20180416
